FAERS Safety Report 25340782 (Version 1)
Quarter: 2025Q2

REPORT INFORMATION
  Report Type: Spontaneous
  Country: FI (occurrence: FI)
  Receive Date: 20250521
  Receipt Date: 20250521
  Transmission Date: 20250716
  Serious: Yes (Other)
  Sender: CHIESI
  Company Number: FI-CHIESI-2025CHF03253

PATIENT
  Age: 15 Year
  Sex: Female

DRUGS (1)
  1. METRELEPTIN [Suspect]
     Active Substance: METRELEPTIN
     Indication: Congenital generalised lipodystrophy
     Route: 058

REACTIONS (1)
  - Hypothalamo-pituitary disorder [Unknown]
